FAERS Safety Report 9618097 (Version 2)
Quarter: 2013Q4

REPORT INFORMATION
  Report Type: Spontaneous
  Country: AU (occurrence: AU)
  Receive Date: 20131013
  Receipt Date: 20131013
  Transmission Date: 20140711
  Serious: Yes (Other)
  Sender: FDA-Public Use
  Company Number: PHHY2012AU099082

PATIENT
  Age: 59 Year
  Sex: Female
  Weight: 82.3 kg

DRUGS (11)
  1. ACLASTA [Suspect]
     Indication: OSTEOPOROSIS
     Dosage: 5 MG, UNK
     Route: 042
     Dates: start: 20110915
  2. ACLASTA [Suspect]
     Dosage: 5 MG, UNK
     Route: 042
     Dates: start: 20121030
  3. ACCOMIN ADULT [Concomitant]
     Indication: LETHARGY
     Dosage: 10 ML, DAILY
     Route: 048
  4. APIDRA [Concomitant]
     Indication: TYPE 2 DIABETES MELLITUS
     Dosage: 15 U, BID
     Route: 058
  5. ASPIRIN [Concomitant]
     Indication: MYOCARDIAL ISCHAEMIA
     Dosage: 1 DF, UNK
  6. CADUET [Concomitant]
     Indication: HYPERTENSION
     Dosage: 1 DF, UNK
     Route: 048
  7. DIABEX [Concomitant]
     Indication: DIABETES MELLITUS
     Dosage: 2 NOCTE
     Route: 048
  8. GLICLAZIDE [Concomitant]
     Indication: DIABETES MELLITUS
     Dosage: 1 DF, DAILY
     Route: 048
  9. LANTUS [Concomitant]
     Indication: DIABETES MELLITUS
     Dosage: 84 U, NOCTE
     Route: 058
  10. PARIET [Concomitant]
     Indication: GASTROOESOPHAGEAL REFLUX DISEASE
     Dosage: 1 DF, DAILY
     Route: 048
  11. PERINDO COMBI [Concomitant]
     Indication: HYPERTENSION
     Dosage: 1 DF, DAILY
     Route: 048

REACTIONS (13)
  - Colon adenoma [Unknown]
  - Myocardial ischaemia [Unknown]
  - Asthenia [Recovered/Resolved]
  - Ventricular hypokinesia [Unknown]
  - Coronary artery stenosis [Unknown]
  - T-cell chronic lymphocytic leukaemia [Unknown]
  - Depression [Unknown]
  - Pyrexia [Recovered/Resolved]
  - Chills [Recovered/Resolved]
  - Vomiting [Recovered/Resolved]
  - Nausea [Recovered/Resolved]
  - Pain [Recovered/Resolved]
  - Malaise [Unknown]
